FAERS Safety Report 12676450 (Version 1)
Quarter: 2016Q3

REPORT INFORMATION
  Report Type: Spontaneous
  Country: US (occurrence: None)
  Receive Date: 20160822
  Receipt Date: 20160822
  Transmission Date: 20161109
  Serious: No
  Sender: FDA-Public Use
  Company Number: None

PATIENT
  Age: 83 Year
  Sex: Female

DRUGS (1)
  1. AFINITOR [Suspect]
     Active Substance: EVEROLIMUS
     Indication: RENAL CANCER

REACTIONS (3)
  - Epistaxis [None]
  - Aphthous ulcer [None]
  - Platelet count decreased [None]

NARRATIVE: CASE EVENT DATE: 20160819
